FAERS Safety Report 9727419 (Version 2)
Quarter: 2013Q4

REPORT INFORMATION
  Report Type: Spontaneous
  Country: IT (occurrence: None)
  Receive Date: 20131129
  Receipt Date: 20131223
  Transmission Date: 20140711
  Serious: Yes (Hospitalization)
  Sender: FDA-Public Use
  Company Number: 2013AP010089

PATIENT
  Age: 23 Year
  Sex: Female

DRUGS (3)
  1. DIAZEPAM (DIAZEPAM) [Suspect]
     Indication: SUICIDE ATTEMPT
     Dosage: TOTAL
     Route: 048
     Dates: start: 20131021, end: 20131021
  2. TOLEP [Suspect]
     Indication: SUICIDE ATTEMPT
     Dosage: TOTAL
     Route: 048
     Dates: start: 20131021, end: 20131021
  3. PAROXETINE (PAROXETINE) [Suspect]
     Indication: SUICIDE ATTEMPT
     Dosage: TOTAL
     Route: 048
     Dates: start: 20131021, end: 20131021

REACTIONS (2)
  - Drug abuse [None]
  - Sopor [None]
